FAERS Safety Report 8130557-9 (Version None)
Quarter: 2012Q1

REPORT INFORMATION
  Report Type: 
  Country: None (occurrence: None)
  Receive Date: 20120211
  Receipt Date: 20120206
  Transmission Date: 20120608
  Serious: Yes (Other)
  Sender: FDA-Public Use
  Company Number: JP-ACCORD-012295

PATIENT
  Age: 80 Year
  Sex: Female

DRUGS (3)
  1. BENIDIPINE [Suspect]
  2. ATORVASTATIN CALCIUM [Concomitant]
  3. DONEPEZIL HCL [Suspect]

REACTIONS (2)
  - DRUG INTERACTION [None]
  - ELECTROCARDIOGRAM QT PROLONGED [None]
